FAERS Safety Report 5297652-3 (Version None)
Quarter: 2007Q2

REPORT INFORMATION
  Report Type: 
  Country: None (occurrence: None)
  Receive Date: 20070409
  Receipt Date: 20070322
  Transmission Date: 20071010
  Serious: Yes (Hospitalization, Other)
  Sender: FDA-Public Use
  Company Number: 200710944GDDC

PATIENT
  Age: 84 Year
  Sex: Female
  Weight: 70 kg

DRUGS (9)
  1. LANTUS [Suspect]
     Dosage: SC
     Route: 058
  2. LANTUS [Suspect]
     Dosage: 27 IU SC
     Route: 058
     Dates: start: 20070101
  3. LANTUS [Suspect]
     Dosage: 30 IU SC
     Route: 058
     Dates: start: 20070127, end: 20070131
  4. LANTUS [Suspect]
     Dosage: 32 IU SC
     Route: 058
     Dates: start: 20070201
  5. OPTIPEN PRO 1 [Suspect]
  6. LOSARTAN POSTASSIUM [Concomitant]
  7. SIMVASTATIN (SINVASCOR) [Concomitant]
  8. ALCADIL [Concomitant]
  9. INSULIN ASPART (NOVORAPID) [Concomitant]

REACTIONS (6)
  - DEVICE MALFUNCTION [None]
  - ENTEROCOLITIS AIDS [None]
  - HYPERGLYCAEMIA [None]
  - HYPOGLYCAEMIA [None]
  - MEDICATION ERROR [None]
  - PHARMACEUTICAL PRODUCT COMPLAINT [None]
